FAERS Safety Report 8530234-6 (Version None)
Quarter: 2012Q3

REPORT INFORMATION
  Report Type: 
  Country: None (occurrence: None)
  Receive Date: 20120723
  Receipt Date: 20120720
  Transmission Date: 20120928
  Serious: Yes (Life-Threatening, Other)
  Sender: FDA-Public Use
  Company Number: PHHY2012AU061899

PATIENT
  Sex: Female

DRUGS (2)
  1. TEGRETOL [Suspect]
     Dosage: 3 DF, BID
  2. TEGRETOL [Suspect]
     Dosage: 200 MG, UNK

REACTIONS (4)
  - FEELING ABNORMAL [None]
  - DEPRESSION [None]
  - AFFECTIVE DISORDER [None]
  - PANIC ATTACK [None]
